FAERS Safety Report 7361465-9 (Version None)
Quarter: 2011Q1

REPORT INFORMATION
  Report Type: 
  Country: None (occurrence: None)
  Receive Date: 20110309
  Receipt Date: 20110224
  Transmission Date: 20110831
  Serious: Yes (Hospitalization)
  Sender: FDA-Public Use
  Company Number: 022048

PATIENT
  Sex: Male
  Weight: 73 kg

DRUGS (17)
  1. ASPIRIN [Concomitant]
  2. WARFARIN [Concomitant]
  3. LASIX [Concomitant]
  4. COUMADIN [Concomitant]
  5. PREDNISONE [Concomitant]
  6. VITAMIN D [Concomitant]
  7. METHOTREXATE [Concomitant]
  8. CALCIUM [Concomitant]
  9. DIABETA [Concomitant]
  10. METFORMIN [Concomitant]
  11. PREVACID [Concomitant]
  12. ACTONEL [Concomitant]
  13. FERROUS SULFATE TAB [Concomitant]
  14. CIMZIA [Suspect]
     Indication: RHEUMATOID ARTHRITIS
     Dosage: 400 MG 1X2 WEEKS, NB OF INTAKES:WEEKS 0,2,4.2,3 DOSES, SUBCUTANEOUS
     Route: 058
     Dates: start: 20101103, end: 20100101
  15. PLAQUENIL [Concomitant]
  16. MONOCOR [Concomitant]
  17. LANOXIN [Concomitant]

REACTIONS (14)
  - NAUSEA [None]
  - DECREASED APPETITE [None]
  - TACHYCARDIA [None]
  - NEOPLASM MALIGNANT [None]
  - ATRIAL FIBRILLATION [None]
  - HYPERTENSION [None]
  - SYNOVIAL CYST [None]
  - ASTHENIA [None]
  - BRONCHITIS [None]
  - TOOTHACHE [None]
  - AORTIC STENOSIS [None]
  - LYMPHADENOPATHY [None]
  - PULMONARY EMBOLISM [None]
  - PNEUMONIA [None]
